FAERS Safety Report 7481049-1 (Version None)
Quarter: 2011Q2

REPORT INFORMATION
  Report Type: 
  Country: None (occurrence: None)
  Receive Date: 20110516
  Receipt Date: 20101110
  Transmission Date: 20111010
  Serious: Yes (Other)
  Sender: FDA-Public Use
  Company Number: US-BAYER-201041837NA

PATIENT
  Age: 59 Year
  Sex: Female
  Weight: 68.027 kg

DRUGS (21)
  1. VANCOMYCIN [Concomitant]
     Dosage: UNK
     Dates: start: 20031205
  2. PAPAVERINE [PAPAVERINE] [Concomitant]
     Dosage: UNK
     Dates: start: 20031205
  3. LEVAQUIN [Concomitant]
  4. ACE INHIBITOR NOS [Concomitant]
  5. IMIPRAMINE [Concomitant]
  6. SUFENTA PRESERVATIVE FREE [Concomitant]
     Dosage: UNK
     Dates: start: 20031205
  7. TRASYLOL [Suspect]
     Indication: CARDIOPULMONARY BYPASS
     Dosage: ILLEGIBLE BOLUS DOSE FOLLOWED BY 50ML/HR INFUSION, 200ML PRIME.
     Route: 042
     Dates: start: 20031205, end: 20031205
  8. TRASYLOL [Suspect]
     Indication: MITRAL VALVE REPAIR
  9. PROPOFOL [Concomitant]
     Dosage: UNK
     Dates: start: 20031205
  10. DOBUTAMINE HYDROCHLORIDE [Concomitant]
     Dosage: UNK
     Dates: start: 20031205
  11. VERSED [Concomitant]
     Dosage: UNK
     Dates: start: 20031205
  12. TRASYLOL [Suspect]
     Indication: AORTIC VALVE REPLACEMENT
  13. HEPARIN [Concomitant]
     Dosage: UNK
     Route: 042
     Dates: start: 20031205
  14. LEVOPHED [Concomitant]
     Dosage: UNK
     Dates: start: 20031205
  15. TRASYLOL [Suspect]
     Indication: CORONARY ARTERY BYPASS
  16. PROTAMINE SULFATE [Concomitant]
     Dosage: UNK
     Route: 042
     Dates: start: 20031205
  17. FENTANYL [Concomitant]
     Dosage: UNK
     Dates: start: 20031205
  18. MAXZIDE [Concomitant]
  19. NITROGLYCERIN [Concomitant]
     Dosage: UNK
     Dates: start: 20031205
  20. FORANE [Concomitant]
     Dosage: UNK
     Dates: start: 20031205
  21. ALBUMIN NOS [Concomitant]
     Dosage: 25 G, UNK
     Dates: start: 20031205

REACTIONS (9)
  - RENAL IMPAIRMENT [None]
  - EMOTIONAL DISTRESS [None]
  - UNEVALUABLE EVENT [None]
  - RENAL INJURY [None]
  - STRESS [None]
  - RENAL FAILURE [None]
  - ANXIETY [None]
  - PAIN [None]
  - FEAR [None]
